FAERS Safety Report 18832108 (Version 1)
Quarter: 2021Q1

REPORT INFORMATION
  Report Type: Spontaneous
  Country: US (occurrence: US)
  Receive Date: 20210201
  Receipt Date: 20210201
  Transmission Date: 20210419
  Serious: No
  Sender: FDA-Public Use
  Company Number: US-ABBVIE-20K-163-3709867-00

PATIENT
  Age: 47 Year
  Sex: Male
  Weight: 99.88 kg

DRUGS (2)
  1. HUMIRA [Suspect]
     Active Substance: ADALIMUMAB
     Indication: PSORIATIC ARTHROPATHY
     Dosage: STARTED TWO YEARS AGO
     Route: 058
     Dates: start: 2018
  2. HUMIRA [Suspect]
     Active Substance: ADALIMUMAB
     Route: 058

REACTIONS (5)
  - Incorrect dose administered [Unknown]
  - Injection site haemorrhage [Recovered/Resolved]
  - Wrong technique in product usage process [Unknown]
  - Device issue [Unknown]
  - Injection site reaction [Recovered/Resolved]

NARRATIVE: CASE EVENT DATE: 202012
